FAERS Safety Report 10071607 (Version 1)
Quarter: 2014Q2

REPORT INFORMATION
  Report Type: Spontaneous
  Country: US (occurrence: US)
  Receive Date: 20140410
  Receipt Date: 20140410
  Transmission Date: 20141212
  Serious: Yes (Hospitalization, Other)
  Sender: FDA-Public Use
  Company Number: US-AMGEN-USASP2014024771

PATIENT
  Age: 23 Year
  Sex: Female

DRUGS (4)
  1. NEUPOGEN [Suspect]
     Indication: BONE MARROW HARVEST
     Dosage: 960 MUG, UNK
     Route: 065
  2. NEULASTA [Suspect]
     Indication: PRODUCT USED FOR UNKNOWN INDICATION
     Dosage: UNK
     Route: 065
  3. TYLENOL                            /00020001/ [Concomitant]
     Indication: PREMEDICATION
     Dosage: UNK
  4. BENADRYL                           /00000402/ [Concomitant]
     Indication: PREMEDICATION
     Dosage: UNK

REACTIONS (2)
  - Loss of consciousness [Recovered/Resolved]
  - Urinary incontinence [Recovered/Resolved]
